FAERS Safety Report 14850761 (Version 1)
Quarter: 2018Q2

REPORT INFORMATION
  Report Type: Spontaneous
  Country: US (occurrence: US)
  Receive Date: 20180506
  Receipt Date: 20180506
  Transmission Date: 20180711
  Serious: No
  Sender: FDA-Public Use
  Company Number: US-JNJFOC-20180410561

PATIENT
  Age: 12 Month
  Sex: Male
  Weight: 10.89 kg

DRUGS (2)
  1. INFANTS TYLENOL [Suspect]
     Active Substance: ACETAMINOPHEN
     Indication: PYREXIA
     Dosage: BETWEEN THE 2.5 AND 2.75 LINE ON THE DROPPER
     Route: 048
     Dates: start: 20180402, end: 20180403
  2. INFANTS TYLENOL [Suspect]
     Active Substance: ACETAMINOPHEN
     Indication: TOOTHACHE
     Dosage: BETWEEN THE 2.5 AND 2.75 LINE ON THE DROPPER
     Route: 048
     Dates: start: 20180402, end: 20180403

REACTIONS (5)
  - Rash [Recovered/Resolved]
  - Restlessness [Recovered/Resolved]
  - Psychomotor hyperactivity [Recovered/Resolved]
  - Irritability [Recovered/Resolved]
  - Insomnia [Recovered/Resolved]

NARRATIVE: CASE EVENT DATE: 20180402
